FAERS Safety Report 6100769-4 (Version None)
Quarter: 2009Q1

REPORT INFORMATION
  Report Type: 
  Country: None (occurrence: None)
  Receive Date: 20090303
  Receipt Date: 20090218
  Transmission Date: 20090719
  Serious: Yes (Other)
  Sender: FDA-Public Use
  Company Number: PHHY2009CA04276

PATIENT
  Sex: Female

DRUGS (6)
  1. DIOVAN HCT [Suspect]
     Indication: HYPERTENSION
     Dosage: 320/12.5 MG DAILY
     Route: 048
  2. DIOVAN HCT [Suspect]
     Dosage: 320 MG
     Route: 048
  3. DIURETICS [Concomitant]
     Dosage: 20 MG
  4. CRESTOR [Concomitant]
     Dosage: 10 UNK, QD
  5. OS-CAL [Concomitant]
     Dosage: 500 UNK, QD
  6. VITAMIN D [Concomitant]
     Dosage: UNK

REACTIONS (3)
  - FALL [None]
  - INTERNAL FIXATION OF FRACTURE [None]
  - LOWER LIMB FRACTURE [None]
